FAERS Safety Report 6196410-5 (Version None)
Quarter: 2009Q2

REPORT INFORMATION
  Report Type: 
  Country: None (occurrence: None)
  Receive Date: 20090518
  Receipt Date: 20090518
  Transmission Date: 20091009
  Serious: Yes (Hospitalization)
  Sender: FDA-Public Use
  Company Number: None

PATIENT
  Age: 65 Year
  Sex: Male
  Weight: 70.7 kg

DRUGS (13)
  1. TRAZODONE HCL [Suspect]
     Indication: DEPRESSION
     Dosage: 50-100MG AT BEDTIME PO
     Route: 048
     Dates: start: 20090306, end: 20090504
  2. TRAZODONE HCL [Suspect]
     Indication: INSOMNIA
     Dosage: 50-100MG AT BEDTIME PO
     Route: 048
     Dates: start: 20090306, end: 20090504
  3. TRAVOPROST [Concomitant]
  4. COSOPT [Concomitant]
  5. PAROXETINE HCL [Concomitant]
  6. COMBIVENT [Concomitant]
  7. ASPIRIN [Concomitant]
  8. GABAPENTIN [Concomitant]
  9. LEVOTHYROXINE SODIUM [Concomitant]
  10. LISINOPRIL [Concomitant]
  11. METFORMIN HYDROCHLORIDE [Concomitant]
  12. OMEPRAZOLE [Concomitant]
  13. SIMVASTATIN [Concomitant]

REACTIONS (2)
  - DYSURIA [None]
  - PRIAPISM [None]
